FAERS Safety Report 4301381-X (Version None)
Quarter: 2004Q1

REPORT INFORMATION
  Report Type: 
  Country: None (occurrence: None)
  Receive Date: 20040223
  Receipt Date: 20030922
  Transmission Date: 20041129
  Serious: No
  Sender: FDA-Public Use
  Company Number: US-GLAXOSMITHKLINE-A0426906A

PATIENT
  Age: 80 Year
  Sex: Male

DRUGS (2)
  1. NAVELBINE [Suspect]
     Indication: NON-SMALL CELL LUNG CANCER
     Route: 042
     Dates: start: 20030910
  2. NONE [Concomitant]

REACTIONS (3)
  - MUCOUS MEMBRANE DISORDER [None]
  - NAUSEA [None]
  - VOMITING [None]
